FAERS Safety Report 8268351-0 (Version None)
Quarter: 2012Q2

REPORT INFORMATION
  Report Type: 
  Country: None (occurrence: None)
  Receive Date: 20120409
  Receipt Date: 20120402
  Transmission Date: 20120825
  Serious: Yes (Hospitalization)
  Sender: FDA-Public Use
  Company Number: US-UCBSA-8043061

PATIENT
  Age: 28 Year
  Sex: Female

DRUGS (8)
  1. KEPPRA [Suspect]
     Dosage: DOSE FREQ.: DAILY
     Route: 048
     Dates: start: 20090211
  2. FOLIC ACID [Concomitant]
     Indication: PREGNANCY
     Dosage: DOSE FREQ.: DAILY
     Route: 048
  3. SYNTHROID [Concomitant]
     Indication: HYPOTHYROIDISM
     Dosage: DOSE FREQ.: DAILY
  4. KEPPRA XR [Suspect]
     Indication: EPILEPSY
     Dosage: DOSE FREQ.: DAILY
     Route: 048
     Dates: start: 20090101, end: 20090211
  5. KEPPRA [Suspect]
     Indication: EPILEPSY
     Dosage: DOSE FREQ.: DAILY
     Route: 048
     Dates: start: 20070901, end: 20090101
  6. VITAMIN AND MINERAL PRENATAL SUPPLEMENT W/ FOLIC ACID CAP [Concomitant]
     Indication: PREGNANCY
     Route: 048
     Dates: start: 20080701
  7. REPLIVA (IRON) [Concomitant]
     Indication: HAEMOGLOBIN DECREASED
     Route: 048
     Dates: start: 20080901
  8. CALCIUM CARBONATE [Concomitant]
     Indication: PREGNANCY
     Route: 048

REACTIONS (5)
  - PREGNANCY [None]
  - SYNCOPE [None]
  - VITAMIN B12 DECREASED [None]
  - HAEMOGLOBIN DECREASED [None]
  - FATIGUE [None]
